FAERS Safety Report 8799310 (Version 2)
Quarter: 2013Q4

REPORT INFORMATION
  Report Type: Spontaneous
  Country: JP (occurrence: JP)
  Receive Date: 20120919
  Receipt Date: 20131031
  Transmission Date: 20140711
  Serious: Yes (Hospitalization)
  Sender: FDA-Public Use
  Company Number: JP-MERCK-1209JPN006457

PATIENT
  Age: 14 Year
  Sex: Male

DRUGS (5)
  1. DECADRON [Suspect]
     Dosage: UNK
     Route: 048
  2. FOSFOMYCIN [Concomitant]
     Indication: VOMITING
     Dosage: UNK
     Route: 048
  3. FOSFOMYCIN [Concomitant]
     Indication: DIARRHOEA
  4. FOSFOMYCIN [Concomitant]
     Indication: HAEMATOCHEZIA
  5. HEPARIN [Concomitant]

REACTIONS (2)
  - Renal failure [Not Recovered/Not Resolved]
  - Drug ineffective [Not Recovered/Not Resolved]
